FAERS Safety Report 17703503 (Version 1)
Quarter: 2020Q2

REPORT INFORMATION
  Report Type: Spontaneous
  Country: NL (occurrence: NL)
  Receive Date: 20200423
  Receipt Date: 20200423
  Transmission Date: 20200714
  Serious: Yes (Life-Threatening, Other)
  Sender: FDA-Public Use
  Company Number: NL-AUROBINDO-AUR-APL-2020-020294

PATIENT
  Sex: Male
  Weight: 87 kg

DRUGS (1)
  1. NAPROXEN 500 MG, TABLET [Suspect]
     Active Substance: NAPROXEN
     Indication: BACK PAIN
     Dosage: 500 MILLIGRAM, ONCE A DAY
     Route: 065
     Dates: start: 20191217

REACTIONS (1)
  - Anaphylactic shock [Recovered/Resolved]
